FAERS Safety Report 10285047 (Version 4)
Quarter: 2014Q3

REPORT INFORMATION
  Report Type: Spontaneous
  Country: DK (occurrence: DK)
  Receive Date: 20140708
  Receipt Date: 20140808
  Transmission Date: 20150326
  Serious: Yes (Hospitalization)
  Sender: FDA-Public Use
  Company Number: DK-PFIZER INC-2014185922

PATIENT
  Age: 50 Year
  Sex: Female

DRUGS (4)
  1. SOLU-CORTEF [Suspect]
     Active Substance: HYDROCORTISONE SODIUM SUCCINATE
     Indication: FACE OEDEMA
  2. ADRENALIN [Suspect]
     Active Substance: EPINEPHRINE
     Indication: SWELLING FACE
     Dosage: 1 MG, UNK (1:10000 SOLUTION)
     Route: 042
  3. SOLU-CORTEF [Suspect]
     Active Substance: HYDROCORTISONE SODIUM SUCCINATE
     Indication: ARTHROPOD BITE
     Dosage: 100 MG, UNK
     Route: 042
  4. ADRENALIN [Suspect]
     Active Substance: EPINEPHRINE
     Indication: ARTHROPOD BITE

REACTIONS (5)
  - Chest pain [Recovered/Resolved]
  - Torsade de pointes [Recovered/Resolved]
  - Stress cardiomyopathy [Recovered/Resolved]
  - Petit mal epilepsy [Recovered/Resolved]
  - Ventricular dysfunction [Recovered/Resolved]
